FAERS Safety Report 9004973 (Version 1)
Quarter: 2013Q1

REPORT INFORMATION
  Report Type: Spontaneous
  Country: IN (occurrence: IN)
  Receive Date: 20130109
  Receipt Date: 20130109
  Transmission Date: 20140127
  Serious: Yes (Death)
  Sender: FDA-Public Use
  Company Number: IN-009507513-1301IND002508

PATIENT
  Age: 62 Year
  Sex: Female

DRUGS (1)
  1. JANUMET [Suspect]
     Dosage: UNK, QD
     Route: 048

REACTIONS (4)
  - Blood glucose fluctuation [Fatal]
  - Hepatic infection [Fatal]
  - Jaundice [Unknown]
  - Inappropriate schedule of drug administration [Unknown]
